FAERS Safety Report 20484256 (Version 1)
Quarter: 2022Q1

REPORT INFORMATION
  Report Type: Report from Study
  Country: FR (occurrence: FR)
  Receive Date: 20220217
  Receipt Date: 20220217
  Transmission Date: 20220423
  Serious: Yes (Hospitalization)
  Sender: FDA-Public Use
  Company Number: FR-NOVARTISPH-NVSC2021FR072066

PATIENT
  Age: 76 Year
  Sex: Female
  Weight: 83 kg

DRUGS (7)
  1. NILOTINIB [Suspect]
     Active Substance: NILOTINIB
     Indication: Chronic myeloid leukaemia
     Dosage: 200 MG, BID
     Route: 048
     Dates: start: 20130611, end: 20140610
  2. OXYCONTIN [Concomitant]
     Active Substance: OXYCODONE HYDROCHLORIDE
     Indication: Musculoskeletal pain
     Dosage: UNK
     Route: 065
     Dates: start: 20180115
  3. CELEBREX [Concomitant]
     Active Substance: CELECOXIB
     Indication: Musculoskeletal pain
     Dosage: UNK
     Route: 065
     Dates: start: 20180303
  4. PREDNISONE [Concomitant]
     Active Substance: PREDNISONE
     Indication: Musculoskeletal pain
     Dosage: UNK
     Route: 065
     Dates: start: 20150226
  5. PROPRANOLOL [Concomitant]
     Active Substance: PROPRANOLOL HYDROCHLORIDE
     Indication: Arrhythmia
     Dosage: UNK
     Route: 065
     Dates: start: 20200603
  6. DAFALGAN [Concomitant]
     Active Substance: ACETAMINOPHEN
     Indication: Tendon disorder
     Dosage: UNK
     Route: 065
     Dates: start: 20190321
  7. FUROSEMIDE [Concomitant]
     Active Substance: FUROSEMIDE
     Indication: Oedema
     Dosage: UNK
     Route: 065
     Dates: start: 20100120

REACTIONS (2)
  - Osteoarthritis [Not Recovered/Not Resolved]
  - Condition aggravated [Not Recovered/Not Resolved]

NARRATIVE: CASE EVENT DATE: 20150602
